FAERS Safety Report 6311251-3 (Version None)
Quarter: 2009Q3

REPORT INFORMATION
  Report Type: 
  Country: None (occurrence: None)
  Receive Date: 20090817
  Receipt Date: 20090521
  Transmission Date: 20100115
  Serious: No
  Sender: FDA-Public Use
  Company Number: US-BAYER-200921653NA

PATIENT
  Sex: Female

DRUGS (3)
  1. YAZ [Suspect]
     Indication: DRUG USE FOR UNKNOWN INDICATION
     Route: 048
     Dates: start: 20080801
  2. CREAM FOR ECZEMA NOS [Concomitant]
     Indication: ECZEMA
  3. NOSTRIANCOLE ACETONE NOS [Concomitant]

REACTIONS (2)
  - METRORRHAGIA [None]
  - VULVOVAGINAL MYCOTIC INFECTION [None]
